FAERS Safety Report 24072786 (Version 3)
Quarter: 2024Q3

REPORT INFORMATION
  Report Type: Report from Study
  Country: AE (occurrence: AE)
  Receive Date: 20240710
  Receipt Date: 20240823
  Transmission Date: 20241016
  Serious: Yes (Death)
  Sender: TAKEDA
  Company Number: AE-TAKEDA-2024TUS069763

PATIENT

DRUGS (1)
  1. HUMAN IMMUNOGLOBULIN G\HYALURONIDASE RECOMBINANT HUMAN [Suspect]
     Active Substance: HUMAN IMMUNOGLOBULIN G\HYALURONIDASE (HUMAN RECOMBINANT)
     Indication: Product used for unknown indication
     Dosage: UNK
     Route: 058

REACTIONS (1)
  - COVID-19 [Fatal]
